FAERS Safety Report 10239830 (Version 1)
Quarter: 2014Q2

REPORT INFORMATION
  Report Type: Spontaneous
  Country: US (occurrence: None)
  Receive Date: 20140612
  Receipt Date: 20140612
  Transmission Date: 20141212
  Serious: No
  Sender: FDA-Public Use
  Company Number: 14AE025

PATIENT
  Age: 34 Year
  Sex: Female

DRUGS (2)
  1. VAPRINO [Suspect]
     Indication: DIARRHOEA
     Dosage: 2 BY MOUTH/DAILY
     Route: 048
     Dates: start: 20140526, end: 20140527
  2. SINGULAIR (BENADRYL) [Concomitant]

REACTIONS (1)
  - Blindness [None]
